FAERS Safety Report 19645369 (Version 1)
Quarter: 2021Q3

REPORT INFORMATION
  Report Type: Spontaneous
  Country: US (occurrence: US)
  Receive Date: 20210802
  Receipt Date: 20210802
  Transmission Date: 20211014
  Serious: No
  Sender: FDA-Public Use
  Company Number: US-IPSEN BIOPHARMACEUTICALS, INC.-2021-18626

PATIENT
  Age: 48 Year

DRUGS (3)
  1. DYSPORT [Suspect]
     Active Substance: ABOBOTULINUMTOXINA
     Indication: FACE LIFT
  2. DYSPORT [Suspect]
     Active Substance: ABOBOTULINUMTOXINA
     Indication: SKIN WRINKLING
     Dosage: 60 IU: 50 UNITS IN GLABELLA AND 10 UNITS FOR EYEBROW LIFT
     Route: 065
     Dates: start: 20210624, end: 20210624
  3. DYSPORT [Suspect]
     Active Substance: ABOBOTULINUMTOXINA
     Indication: OFF LABEL USE

REACTIONS (3)
  - Dermatochalasis [Unknown]
  - Eyelid ptosis [Unknown]
  - Off label use [Unknown]

NARRATIVE: CASE EVENT DATE: 20210624
